FAERS Safety Report 4263636-7 (Version None)
Quarter: 2004Q1

REPORT INFORMATION
  Report Type: 
  Country: None (occurrence: None)
  Receive Date: 20040102
  Receipt Date: 20031219
  Transmission Date: 20041129
  Serious: Yes (Hospitalization, Other)
  Sender: FDA-Public Use
  Company Number: 2003119508

PATIENT
  Age: 31 Year
  Sex: Female
  Weight: 60 kg

DRUGS (10)
  1. NEURONTIN [Suspect]
     Indication: NEUROPATHIC PAIN
     Dosage: 900 MG (TID), ORAL
     Route: 048
     Dates: start: 20031010, end: 20031101
  2. DIAZEPAM [Suspect]
     Indication: MUSCLE SPASMS
     Dates: start: 20031101
  3. TRAMADOL (TRAMADOL) [Suspect]
     Indication: ILL-DEFINED DISORDER
     Dosage: ORAL
     Route: 048
  4. TEMAZEPAM [Suspect]
     Indication: ILL-DEFINED DISORDER
     Dosage: ORAL
     Route: 048
  5. DIAMORPHINE (DIAMORPHINE) [Concomitant]
  6. ALIMEMAZINE TARTRATE (ALIMEMAZINE TARTRATE) [Concomitant]
  7. INDOMETHACIN [Concomitant]
  8. CODEINE PHOSPHATE AND ACETAMINOPHEN [Concomitant]
  9. FLUOXETINE HCL [Concomitant]
  10. ALIMEMAZINE TARTRATE [Concomitant]

REACTIONS (9)
  - CONTUSION [None]
  - DEPRESSED MOOD [None]
  - EUPHORIC MOOD [None]
  - FALL [None]
  - JUDGEMENT IMPAIRED [None]
  - MOOD ALTERED [None]
  - MULTIPLE DRUG OVERDOSE [None]
  - MUSCLE SPASMS [None]
  - PAIN EXACERBATED [None]
